FAERS Safety Report 15861746 (Version 6)
Quarter: 2021Q4

REPORT INFORMATION
  Report Type: Spontaneous
  Country: US (occurrence: US)
  Receive Date: 20190124
  Receipt Date: 20211012
  Transmission Date: 20220304
  Serious: No
  Sender: FDA-Public Use
  Company Number: US-PFIZER INC-2017500259

PATIENT
  Age: 71 Year
  Sex: Female
  Weight: 65 kg

DRUGS (20)
  1. LYRICA [Suspect]
     Active Substance: PREGABALIN
     Indication: Neuralgia
     Dosage: UNK
     Route: 048
  2. LYRICA [Suspect]
     Active Substance: PREGABALIN
     Indication: Pain in extremity
     Dosage: 50 MG, 3X/DAY
     Route: 048
     Dates: start: 20171101
  3. LYRICA [Suspect]
     Active Substance: PREGABALIN
     Indication: Back pain
     Dosage: 50 MG, 2X/DAY
     Route: 048
  4. LYRICA [Suspect]
     Active Substance: PREGABALIN
     Indication: Fibromyalgia
     Dosage: UNK
     Route: 048
  5. VITAMIN D3 [Concomitant]
     Active Substance: CHOLECALCIFEROL
     Dosage: 1000 IU, UNK
  6. PREMARIN [Concomitant]
     Active Substance: ESTROGENS, CONJUGATED
     Dosage: UNK
     Route: 067
  7. CYANOCOBALAMIN [Concomitant]
     Active Substance: CYANOCOBALAMIN
     Dosage: 500 UG, UNK
  8. DILTIAZEM HYDROCHLORIDE [Concomitant]
     Active Substance: DILTIAZEM HYDROCHLORIDE
     Dosage: 30 MG, UNK
  9. FLONASE [Concomitant]
     Active Substance: FLUTICASONE PROPIONATE
     Dosage: UNK (50MCG/ACTUATION NASAL SPRAY)
     Route: 045
  10. NORCO [Concomitant]
     Active Substance: ACETAMINOPHEN\HYDROCODONE BITARTRATE
     Dosage: UNK [HYDROCODONE BITARTRATE 7.5MG/PARACETAMOL 32.5MG]
  11. SYNTHROID [Concomitant]
     Active Substance: LEVOTHYROXINE SODIUM
     Dosage: 125 UG, UNK
  12. SYNTHROID [Concomitant]
     Active Substance: LEVOTHYROXINE SODIUM
     Dosage: 25 UG, UNK
  13. DESYREL [Concomitant]
     Active Substance: TRAZODONE HYDROCHLORIDE
     Dosage: 100 MG, UNK
  14. INFLUENZA TRIVALENT HIGH DOSE PRESERVATIVE [Concomitant]
     Dosage: UNK
     Route: 030
     Dates: start: 20141105, end: 20141105
  15. INFLUENZA TRIVALENT HIGH DOSE PRESERVATIVE [Concomitant]
     Dosage: UNK
     Route: 030
     Dates: start: 20151019, end: 20151019
  16. INFLUENZA TRIVALENT HIGH DOSE PRESERVATIVE [Concomitant]
     Dosage: UNK
     Route: 030
     Dates: start: 20161021, end: 20161021
  17. INFLUENZA TRIVALENT HIGH DOSE PRESERVATIVE [Concomitant]
     Dosage: UNK
     Route: 030
     Dates: start: 20171003, end: 20171003
  18. PNEUMOCOCCAL CONJUGATE 13 [Concomitant]
     Dosage: UNK
     Dates: start: 20161021, end: 20161021
  19. PNEUMOCOCCAL VACCINE POLYVALENT [Concomitant]
     Active Substance: PNEUMOCOCCAL VACCINE POLYVALENT
     Dosage: UNK
     Dates: start: 20140724, end: 20140724
  20. ZOSTER [Concomitant]
     Dosage: UNK
     Dates: start: 20161220

REACTIONS (5)
  - Muscle spasms [Recovering/Resolving]
  - Somnolence [Unknown]
  - Drug hypersensitivity [Unknown]
  - Drug ineffective [Unknown]
  - Product dose omission issue [Unknown]

NARRATIVE: CASE EVENT DATE: 20181201
